FAERS Safety Report 8815966 (Version 1)
Quarter: 2012Q4

REPORT INFORMATION
  Report Type: 
  Country: US (occurrence: US)
  Receive Date: 20120928
  Receipt Date: 20120928
  Transmission Date: 20130627
  Serious: Yes (Death)
  Sender: FDA-Public Use
  Company Number: US-ROCHE-1104099

PATIENT
  Sex: Female

DRUGS (9)
  1. RITUXAN [Suspect]
     Indication: DIFFUSE LARGE B-CELL LYMPHOMA
     Route: 065
     Dates: start: 20020311
  2. RITUXAN [Suspect]
     Indication: OFF LABEL USE
     Route: 065
     Dates: start: 20020318
  3. RITUXAN [Suspect]
     Route: 065
     Dates: start: 20020415
  4. RITUXAN [Suspect]
     Route: 065
     Dates: start: 20020506
  5. ESHAP [Concomitant]
     Route: 065
     Dates: start: 20020311
  6. CYCLOPHOSPHAMIDE [Concomitant]
  7. HYDROXYDAUNORUBICIN [Concomitant]
  8. VINCRISTINE [Concomitant]
  9. PREDNISONE [Concomitant]
     Route: 065

REACTIONS (1)
  - Death [Fatal]
